FAERS Safety Report 6583044-3 (Version None)
Quarter: 2010Q1

REPORT INFORMATION
  Report Type: 
  Country: None (occurrence: None)
  Receive Date: 20100216
  Receipt Date: 20100209
  Transmission Date: 20100710
  Serious: Yes (Death, Hospitalization)
  Sender: FDA-Public Use
  Company Number: HU-ROCHE-680570

PATIENT
  Sex: Female
  Weight: 85 kg

DRUGS (3)
  1. CAPECITABINE [Suspect]
     Indication: BREAST CANCER
     Route: 048
     Dates: start: 20090512, end: 20090803
  2. SUNITINIB MALATE [Suspect]
     Indication: BREAST CANCER
     Route: 048
     Dates: start: 20091012, end: 20091231
  3. METHYLPREDNISOLONE [Concomitant]
     Indication: LEUKOPENIA
     Dates: start: 20091116, end: 20100101

REACTIONS (4)
  - ASTHENIA [None]
  - CARDIAC FAILURE ACUTE [None]
  - DIARRHOEA [None]
  - LEUKOPENIA [None]
